FAERS Safety Report 15550772 (Version 1)
Quarter: 2018Q4

REPORT INFORMATION
  Report Type: Spontaneous
  Country: US (occurrence: US)
  Receive Date: 20181025
  Receipt Date: 20181025
  Transmission Date: 20190205
  Serious: No
  Sender: FDA-Public Use
  Company Number: US-TEVA-2018-US-966669

PATIENT
  Age: 62 Year
  Sex: Female

DRUGS (1)
  1. CLONAZEPAM. [Suspect]
     Active Substance: CLONAZEPAM
     Indication: INSOMNIA
     Dates: start: 2006, end: 201809

REACTIONS (2)
  - Drug ineffective [Unknown]
  - Product substitution issue [Unknown]

NARRATIVE: CASE EVENT DATE: 2006
